FAERS Safety Report 10077896 (Version 1)
Quarter: 2014Q2

REPORT INFORMATION
  Report Type: Spontaneous
  Country: CO (occurrence: CO)
  Receive Date: 20140415
  Receipt Date: 20140415
  Transmission Date: 20141212
  Serious: Yes (Other)
  Sender: FDA-Public Use
  Company Number: CO-AMGEN INC.-COLSP2014026703

PATIENT
  Age: 76 Year
  Sex: Female

DRUGS (1)
  1. ENBREL [Suspect]
     Indication: RHEUMATOID ARTHRITIS
     Dosage: 50 MG, WEEKLY
     Route: 058
     Dates: start: 2012

REACTIONS (5)
  - Hip fracture [Recovered/Resolved]
  - Arthralgia [Not Recovered/Not Resolved]
  - Cystitis [Not Recovered/Not Resolved]
  - Joint effusion [Unknown]
  - Influenza [Not Recovered/Not Resolved]
